FAERS Safety Report 25077263 (Version 4)
Quarter: 2025Q3

REPORT INFORMATION
  Report Type: Spontaneous
  Country: RS (occurrence: RS)
  Receive Date: 20250314
  Receipt Date: 20250818
  Transmission Date: 20251021
  Serious: Yes (Hospitalization)
  Sender: MERCK SHARP & DOHME LLC
  Company Number: RS-009507513-2263868

PATIENT
  Age: 64 Year
  Sex: Female
  Weight: 41 kg

DRUGS (2)
  1. KEYTRUDA [Suspect]
     Active Substance: PEMBROLIZUMAB
     Indication: Breast cancer
     Dosage: DOSING INTERVAL: 1 PER 3 WEEKS?DURATION: 6 (UNITS NOT REPORTED)?INDICATION AS REPORTED BY INITIAL...
     Route: 042
     Dates: start: 20240711, end: 20250103
  2. CARBOPLATIN [Suspect]
     Active Substance: CARBOPLATIN
     Indication: Breast cancer
     Route: 065
     Dates: start: 20240711, end: 20241007

REACTIONS (2)
  - Immune-mediated enterocolitis [Recovered/Resolved with Sequelae]
  - Therapy partial responder [Unknown]

NARRATIVE: CASE EVENT DATE: 20240101
